FAERS Safety Report 19761975 (Version 3)
Quarter: 2021Q4

REPORT INFORMATION
  Report Type: Report from Study
  Country: AR (occurrence: AR)
  Receive Date: 20210827
  Receipt Date: 20211025
  Transmission Date: 20220303
  Serious: Yes (Hospitalization, Other)
  Sender: FDA-Public Use
  Company Number: PHHY2016AR025089

PATIENT
  Sex: Male

DRUGS (8)
  1. EXFORGE [Suspect]
     Active Substance: AMLODIPINE BESYLATE\VALSARTAN
     Indication: Hypertension
     Dosage: 1 DF, QD
     Route: 065
     Dates: start: 20160222
  2. EXFORGE [Suspect]
     Active Substance: AMLODIPINE BESYLATE\VALSARTAN
     Dosage: 1 DF, QD
     Route: 065
  3. EXFORGE [Suspect]
     Active Substance: AMLODIPINE BESYLATE\VALSARTAN
     Dosage: 1 DF, QD (IN THE MORNING)
     Route: 065
     Dates: start: 20190406, end: 20210819
  4. AMLODIPINE [Suspect]
     Active Substance: AMLODIPINE BESYLATE
     Indication: Blood pressure decreased
     Dosage: 10 MG
     Route: 065
  5. DIOVAN [Suspect]
     Active Substance: VALSARTAN
     Indication: Blood pressure increased
     Dosage: 160 MG, IN THE AFTER NOON
     Route: 065
     Dates: start: 20160222
  6. VALSARTAN [Concomitant]
     Active Substance: VALSARTAN
     Indication: Product used for unknown indication
     Dosage: 160 UNK
     Route: 065
  7. ASPIRIN [Concomitant]
     Active Substance: ASPIRIN
     Indication: Product used for unknown indication
     Dosage: UNK UNK, QD
     Route: 065
  8. ROPIVACAINE HYDROCHLORIDE [Concomitant]
     Active Substance: ROPIVACAINE HYDROCHLORIDE
     Indication: Blood pressure increased
     Route: 065

REACTIONS (10)
  - Neuropathy peripheral [Unknown]
  - Renal disorder [Unknown]
  - Hypertension [Recovering/Resolving]
  - Renal failure [Unknown]
  - Blood creatinine increased [Unknown]
  - Joint swelling [Recovered/Resolved]
  - Hypoacusis [Unknown]
  - Anxiety [Unknown]
  - Blood pressure decreased [Unknown]
  - Memory impairment [Unknown]
